FAERS Safety Report 9331694 (Version 1)
Quarter: 2013Q2

REPORT INFORMATION
  Report Type: Spontaneous
  Country: US (occurrence: None)
  Receive Date: 20130523
  Receipt Date: 20130523
  Transmission Date: 20140414
  Serious: Yes (Hospitalization)
  Sender: FDA-Public Use
  Company Number: 2013PROUSA02816

PATIENT
  Age: 72 Year
  Sex: Male
  Weight: 94.8 kg

DRUGS (21)
  1. PROVENGE (SIPULEUCEL-T) SUSPENSION [Suspect]
     Indication: PROSTATE CANCER METASTATIC
     Dosage: SINGLE?
     Route: 042
     Dates: start: 20121012, end: 20121012
  2. DIVALPROEX SODIUM (VALPROATE SEMISODIUM) [Concomitant]
  3. ZOLPIDEM (ZOLPIDEM TARTRATE) [Concomitant]
  4. METFORMIN (METFORMIN HYDROCHLORIDE) [Concomitant]
  5. ALLOPURINOL [Concomitant]
  6. NAMENDA (MEMANTINE HYDROCYLORIDE) [Concomitant]
  7. AMIODARONE (AMIODARONE HYDROCHLORIDE) [Concomitant]
  8. PRAVASTATIN (PRAVASTATIN SODIUM) [Concomitant]
  9. ASPIRIN (ACETYLSALICYLIC ACID) [Concomitant]
  10. TYLENOL (PARACETAMOL) [Concomitant]
  11. CALTRATE (CALCIUM CARBONATE) [Concomitant]
  12. VITAMIN D (COLECALCIFEROL) [Concomitant]
  13. DEPAKOTE (VALPROATE SEMISODIUM) [Concomitant]
  14. DILAUDID (HYDROMORPHONE HYDROCHLORIDE) INJECTION [Concomitant]
  15. KRILL OMEGA RED OIL (OMEGA-3 FATTY ACIDS) [Concomitant]
  16. KEPPRA (LEVETIRACETAM) [Concomitant]
  17. MELOXICAM (MELOXICAM) [Concomitant]
  18. PRADAXA (DABIGATRAN ETEXILATE MESILATE) [Concomitant]
  19. THIAMINE (THIAMINE HYDROCHLORIDE) [Concomitant]
  20. VITAMIN B12 AAA (CYANOCOBALAMIN) [Concomitant]
  21. VITAMIN B1 (THIAMINE HYDROCHLORIDE) [Concomitant]

REACTIONS (3)
  - Syncope [None]
  - Balance disorder [None]
  - Orthostatic hypotension [None]
